FAERS Safety Report 5349148-8 (Version None)
Quarter: 2007Q2

REPORT INFORMATION
  Report Type: 
  Country: None (occurrence: None)
  Receive Date: 20070607
  Receipt Date: 20070530
  Transmission Date: 20071010
  Serious: Yes (Death)
  Sender: FDA-Public Use
  Company Number: US-ROCHE-499780

PATIENT
  Age: 49 Year
  Sex: Male

DRUGS (1)
  1. PEGASYS [Suspect]
     Indication: HEPATITIS C VIRUS
     Route: 065

REACTIONS (3)
  - HEPATIC CIRRHOSIS [None]
  - HEPATITIS C [None]
  - MALAISE [None]
